FAERS Safety Report 25484626 (Version 1)
Quarter: 2025Q2

REPORT INFORMATION
  Report Type: Spontaneous
  Country: US (occurrence: None)
  Receive Date: 20250627
  Receipt Date: 20250627
  Transmission Date: 20250716
  Serious: Yes (Hospitalization)
  Sender: FDA-CTU
  Company Number: None

PATIENT
  Sex: Male

DRUGS (10)
  1. CREON [Suspect]
     Active Substance: PANCRELIPASE AMYLASE\PANCRELIPASE LIPASE\PANCRELIPASE PROTEASE
     Indication: Cystic fibrosis
     Route: 048
     Dates: start: 20250417
  2. ALBUTEROL [Concomitant]
     Active Substance: ALBUTEROL
  3. AUGMENTIN XR [Concomitant]
     Active Substance: AMOXICILLIN\CLAVULANATE POTASSIUM
  4. DESLORATADINE [Concomitant]
     Active Substance: DESLORATADINE
  5. DULERA [Concomitant]
     Active Substance: FORMOTEROL FUMARATE DIHYDRATE\MOMETASONE FUROATE
  6. HUMALOG KWIK [Concomitant]
  7. INSULIN GLAR [Concomitant]
  8. INSULIN LISP [Concomitant]
  9. LEVOFLIOXACIN [Concomitant]
  10. MONTELUSAST SODIIUM [Concomitant]

REACTIONS (1)
  - Surgery [None]
